FAERS Safety Report 7826796-4 (Version None)
Quarter: 2011Q4

REPORT INFORMATION
  Report Type: 
  Country: None (occurrence: None)
  Receive Date: 20111020
  Receipt Date: 20111012
  Transmission Date: 20120403
  Serious: Yes (Hospitalization)
  Sender: FDA-Public Use
  Company Number: JP-ABBOTT-11P-087-0866145-00

PATIENT
  Sex: Male
  Weight: 49 kg

DRUGS (13)
  1. PROPOFOL [Suspect]
     Indication: INDUCTION OF ANAESTHESIA
     Route: 042
     Dates: start: 20061109, end: 20061109
  2. BROMPERIDOL [Suspect]
     Indication: SCHIZOPHRENIA
     Dates: start: 19720101
  3. EPHEDRINE HYDROCHLORIDE [Concomitant]
     Indication: VASOPRESSIVE THERAPY
     Route: 042
     Dates: start: 20061109, end: 20061109
  4. FENTANYL CITRATE [Concomitant]
     Route: 008
     Dates: start: 20061109, end: 20061109
  5. VECURONIUM BROMIDE [Concomitant]
     Indication: MUSCLE RELAXANT THERAPY
     Route: 042
     Dates: start: 20061109, end: 20061109
  6. FENTANYL CITRATE [Concomitant]
     Indication: ANALGESIC THERAPY
     Route: 042
     Dates: start: 20061109, end: 20061109
  7. SEVOFLURANE [Suspect]
     Indication: MAINTENANCE OF ANAESTHESIA
     Dosage: 1-1.5% X 1
     Route: 055
     Dates: start: 20061109, end: 20061109
  8. NITROUS OXIDE [Concomitant]
     Indication: MAINTENANCE OF ANAESTHESIA
     Route: 055
     Dates: start: 20061109, end: 20061109
  9. NEULEPTIL [Suspect]
     Indication: SCHIZOPHRENIA
     Route: 048
     Dates: start: 19720101
  10. UNKNOWN [Suspect]
     Indication: ANALGESIC THERAPY
     Route: 008
     Dates: start: 20061109, end: 20061109
  11. ATROPINE SULFATE [Concomitant]
     Indication: VASOPRESSIVE THERAPY
     Route: 042
     Dates: start: 20061109, end: 20061109
  12. ISOSORBIDE DINITRATE [Concomitant]
     Indication: BLOOD PRESSURE ABNORMAL
     Dates: start: 20061109, end: 20061109
  13. LIDOCAINE [Concomitant]
     Indication: INDUCTION OF ANAESTHESIA
     Route: 008
     Dates: start: 20061109, end: 20061109

REACTIONS (2)
  - VENTRICULAR FIBRILLATION [None]
  - HYPOTENSION [None]
